FAERS Safety Report 7930175-9 (Version None)
Quarter: 2011Q4

REPORT INFORMATION
  Report Type: 
  Country: None (occurrence: None)
  Receive Date: 20111121
  Receipt Date: 20111109
  Transmission Date: 20120403
  Serious: Yes (Other)
  Sender: FDA-Public Use
  Company Number: FR-BAYER-2011-111460

PATIENT
  Sex: Female

DRUGS (2)
  1. ESTRADIOL VALERATE/DIENOGEST [Suspect]
     Dosage: UNK
     Route: 064
     Dates: start: 20101227, end: 20110513
  2. ESTRADIOL VALERATE/DIENOGEST [Suspect]
     Dosage: UNK
     Route: 064
     Dates: start: 20101227, end: 20110513

REACTIONS (1)
  - BREECH PRESENTATION [None]
